FAERS Safety Report 18351849 (Version 1)
Quarter: 2020Q4

REPORT INFORMATION
  Report Type: Spontaneous
  Country: US (occurrence: US)
  Receive Date: 20201006
  Receipt Date: 20201006
  Transmission Date: 20210114
  Serious: Yes (Death, Other)
  Sender: FDA-Public Use
  Company Number: US-TEVA-2020-US-1834247

PATIENT
  Sex: Male

DRUGS (17)
  1. CARISOPRODOL. [Suspect]
     Active Substance: CARISOPRODOL
     Route: 065
  2. OXYFAST [Suspect]
     Active Substance: OXYCODONE
     Route: 065
  3. PALLADONE [Suspect]
     Active Substance: HYDROMORPHONE HYDROCHLORIDE
     Route: 065
  4. MEPROBAMATE. [Suspect]
     Active Substance: MEPROBAMATE
     Route: 065
  5. CAFFEINE. [Suspect]
     Active Substance: CAFFEINE
     Route: 065
  6. OXYCODONE [Suspect]
     Active Substance: OXYCODONE
     Dosage: FORM OF ADMIN:  IMMEDIATE-RELEASE TABLETS
     Route: 065
  7. OXYMORPHONE [Suspect]
     Active Substance: OXYMORPHONE
     Route: 065
  8. HYSINGLA ER [Suspect]
     Active Substance: HYDROCODONE BITARTRATE
     Route: 065
  9. OXYCODONE [Suspect]
     Active Substance: OXYCODONE
     Route: 065
  10. HYDROMORPHONE [Suspect]
     Active Substance: HYDROMORPHONE
     Route: 048
  11. DHC PLUS [Suspect]
     Active Substance: ACETAMINOPHEN\CAFFEINE\DIHYDROCODEINE BITARTRATE
     Route: 065
  12. HYDROMORPHONE [Suspect]
     Active Substance: HYDROMORPHONE
     Route: 065
  13. MSIR [Suspect]
     Active Substance: MORPHINE SULFATE
     Route: 065
  14. ACETAMINOPHEN. [Suspect]
     Active Substance: ACETAMINOPHEN
     Route: 065
  15. CLONAZEPAM. [Suspect]
     Active Substance: CLONAZEPAM
     Route: 065
  16. HYDROCODONE AND ACETAMINOPHEN TABLETS [Suspect]
     Active Substance: ACETAMINOPHEN\HYDROCODONE
     Route: 065
  17. TRAMADOL. [Suspect]
     Active Substance: TRAMADOL
     Dosage: FORM OF ADMIN: EXTENDED RELEASE TABLET
     Route: 065

REACTIONS (4)
  - Economic problem [Unknown]
  - Drug dependence [Fatal]
  - Substance use disorder [Unknown]
  - Overdose [Unknown]
